FAERS Safety Report 10034920 (Version 2)
Quarter: 2014Q2

REPORT INFORMATION
  Report Type: Spontaneous
  Country: US (occurrence: US)
  Receive Date: 20140325
  Receipt Date: 20140417
  Transmission Date: 20141212
  Serious: No
  Sender: FDA-Public Use
  Company Number: US-009507513-1403USA004478

PATIENT
  Age: 60 Year
  Sex: Female
  Weight: 68.27 kg

DRUGS (6)
  1. OXYTROL FOR WOMEN [Suspect]
     Indication: ENURESIS
     Dosage: 1 DF, Q4D
     Route: 062
     Dates: start: 20140226, end: 20140314
  2. OXYTROL FOR WOMEN [Suspect]
     Indication: INCONTINENCE
  3. LEVOTHYROXINE SODIUM [Concomitant]
     Indication: HYPOTHYROIDISM
     Dosage: 50 MICROGRAM, QD
  4. BACLOFEN [Concomitant]
     Indication: PRODUCT USED FOR UNKNOWN INDICATION
     Dosage: 10 MG, TID
  5. CLONAZEPAM [Concomitant]
     Indication: PRODUCT USED FOR UNKNOWN INDICATION
     Dosage: 1 MG, BID
  6. VENLAFAXINE HYDROCHLORIDE [Concomitant]
     Indication: PRODUCT USED FOR UNKNOWN INDICATION
     Dosage: 150 MG, QD

REACTIONS (2)
  - Headache [Unknown]
  - Drug ineffective [Unknown]
